FAERS Safety Report 8146134-X (Version None)
Quarter: 2012Q1

REPORT INFORMATION
  Report Type: 
  Country: None (occurrence: None)
  Receive Date: 20120217
  Receipt Date: 20120213
  Transmission Date: 20120608
  Serious: Yes (Other)
  Sender: FDA-Public Use
  Company Number: US-PFIZER INC-2012039606

PATIENT
  Sex: Female

DRUGS (3)
  1. EFFEXOR XR [Suspect]
     Dosage: UNK
  2. PRISTIQ [Suspect]
     Dosage: 100 MG DAILY
  3. PRISTIQ [Suspect]
     Dosage: 50 MG DAILY

REACTIONS (5)
  - OSTEOPOROSIS [None]
  - RENAL IMPAIRMENT [None]
  - BLOOD CREATININE INCREASED [None]
  - IRRITABILITY [None]
  - EMOTIONAL DISORDER [None]
